FAERS Safety Report 19545764 (Version 1)
Quarter: 2021Q3

REPORT INFORMATION
  Report Type: Spontaneous
  Country: ES (occurrence: ES)
  Receive Date: 20210714
  Receipt Date: 20210714
  Transmission Date: 20211014
  Serious: Yes (Hospitalization, Other)
  Sender: FDA-Public Use
  Company Number: NVSC2021ES151999

PATIENT
  Sex: Female

DRUGS (1)
  1. EXELON [Suspect]
     Active Substance: RIVASTIGMINE TARTRATE
     Indication: DEMENTIA ALZHEIMER^S TYPE
     Dosage: UNK
     Route: 062
     Dates: start: 2019

REACTIONS (12)
  - Vomiting [Unknown]
  - Pallor [Unknown]
  - Head injury [Unknown]
  - Syncope [Unknown]
  - Abdominal pain upper [Unknown]
  - Dyspnoea [Unknown]
  - Epilepsy [Unknown]
  - Facial bones fracture [Unknown]
  - Fall [Unknown]
  - Lip injury [Unknown]
  - Sleep apnoea syndrome [Unknown]
  - Constipation [Unknown]
